FAERS Safety Report 4616675-8 (Version None)
Quarter: 2005Q2

REPORT INFORMATION
  Report Type: 
  Country: None (occurrence: None)
  Receive Date: 20050311
  Receipt Date: 20050127
  Transmission Date: 20051028
  Serious: No
  Sender: FDA-Public Use
  Company Number: 2005-00128

PATIENT
  Age: 71 Year
  Sex: Female
  Weight: 77.1 kg

DRUGS (6)
  1. VELCADE [Suspect]
     Indication: MULTIPLE MYELOMA
     Dosage: INTRAVENOUS
     Route: 042
     Dates: start: 20041001
  2. ISOPTIN [Concomitant]
  3. ALLOPURINOL [Concomitant]
  4. AMITRIPTYLINE HCL [Concomitant]
  5. OXYCONTIN [Concomitant]
  6. FUROSEMIDE (FUROSEMIDE) [Concomitant]

REACTIONS (2)
  - NAUSEA [None]
  - PLATELET COUNT DECREASED [None]
